FAERS Safety Report 10348326 (Version 2)
Quarter: 2014Q4

REPORT INFORMATION
  Report Type: Spontaneous
  Country: IT (occurrence: None)
  Receive Date: 20140725
  Receipt Date: 20141113
  Transmission Date: 20150528
  Serious: Yes (Hospitalization)
  Sender: FDA-Public Use
  Company Number: 7309232

PATIENT
  Age: 75 Year
  Sex: Female

DRUGS (3)
  1. CLOZAPINE (CLOZAPINE) (CLOZAPINE) [Concomitant]
  2. EUTIROX [Suspect]
     Active Substance: LEVOTHYROXINE SODIUM
     Indication: HYPOTHYROIDISM
     Dosage: 1 UNIT
     Route: 048
     Dates: start: 20140415, end: 20140522
  3. LASIX (FUROSEMIDE) (SOLUTION FOR INJECTION (FUROSEMIDE) [Concomitant]

REACTIONS (2)
  - Drug ineffective [None]
  - Hypothyroidism [None]

NARRATIVE: CASE EVENT DATE: 20140522
